FAERS Safety Report 13813947 (Version 1)
Quarter: 2017Q3

REPORT INFORMATION
  Report Type: Spontaneous
  Country: US (occurrence: US)
  Receive Date: 20170728
  Receipt Date: 20170728
  Transmission Date: 20171127
  Serious: Yes (Other)
  Sender: FDA-Public Use
  Company Number: None

PATIENT
  Age: 70 Year
  Sex: Male

DRUGS (15)
  1. DEXAMETHASONE. [Concomitant]
     Active Substance: DEXAMETHASONE
  2. AMLODIPINE [Concomitant]
     Active Substance: AMLODIPINE BESYLATE
  3. PRAVASTATIN. [Concomitant]
     Active Substance: PRAVASTATIN
  4. VITAMIN B6 [Concomitant]
     Active Substance: PYRIDOXINE HYDROCHLORIDE
  5. LISINOPRIL. [Concomitant]
     Active Substance: LISINOPRIL
  6. PYRAZINAMIDE. [Concomitant]
     Active Substance: PYRAZINAMIDE
  7. RIFAMPIN. [Concomitant]
     Active Substance: RIFAMPIN
  8. REVLIMID [Suspect]
     Active Substance: LENALIDOMIDE
     Indication: PLASMA CELL MYELOMA
     Route: 048
     Dates: start: 20170522, end: 20170703
  9. GLIPIZIDE. [Concomitant]
     Active Substance: GLIPIZIDE
  10. ACYCLOVIR. [Concomitant]
     Active Substance: ACYCLOVIR
  11. CALCIUM ACETATE. [Concomitant]
     Active Substance: CALCIUM ACETATE
  12. ISONIAZID. [Concomitant]
     Active Substance: ISONIAZID
  13. LENALIDOMIDE [Concomitant]
     Active Substance: LENALIDOMIDE
  14. BORTAZIMIB [Concomitant]
  15. ASPIRIN. [Concomitant]
     Active Substance: ASPIRIN

REACTIONS (2)
  - Pruritus [None]
  - Rash [None]

NARRATIVE: CASE EVENT DATE: 20170602
